FAERS Safety Report 13295039 (Version 8)
Quarter: 2025Q2

REPORT INFORMATION
  Report Type: Spontaneous
  Country: FI (occurrence: FI)
  Receive Date: 20170303
  Receipt Date: 20250429
  Transmission Date: 20250716
  Serious: Yes (Life-Threatening, Hospitalization, Other)
  Sender: JOHNSON AND JOHNSON
  Company Number: FI-JNJFOC-20170226194

PATIENT
  Age: 49 Year
  Sex: Male

DRUGS (32)
  1. HALOPERIDOL [Suspect]
     Active Substance: HALOPERIDOL
     Indication: Type 2 diabetes mellitus
     Route: 065
  2. RISPERIDONE [Suspect]
     Active Substance: RISPERIDONE
     Indication: Psychotic disorder
     Route: 065
  3. RISPERIDONE [Suspect]
     Active Substance: RISPERIDONE
     Indication: Type 2 diabetes mellitus
  4. RISPERIDONE [Suspect]
     Active Substance: RISPERIDONE
  5. RISPERIDONE [Suspect]
     Active Substance: RISPERIDONE
  6. RISPERIDONE [Suspect]
     Active Substance: RISPERIDONE
  7. RISPERIDONE [Suspect]
     Active Substance: RISPERIDONE
  8. VALPROIC ACID [Suspect]
     Active Substance: VALPROIC ACID
     Indication: Psychotic disorder
     Route: 065
  9. VALPROIC ACID [Suspect]
     Active Substance: VALPROIC ACID
     Route: 065
  10. OLANZAPINE [Suspect]
     Active Substance: OLANZAPINE
     Indication: Product used for unknown indication
     Route: 065
  11. QUETIAPINE [Suspect]
     Active Substance: QUETIAPINE
     Indication: Product used for unknown indication
     Route: 048
  12. QUETIAPINE [Suspect]
     Active Substance: QUETIAPINE
     Route: 065
  13. DIAZEPAM [Suspect]
     Active Substance: DIAZEPAM
     Indication: Product used for unknown indication
     Route: 065
  14. DIAZEPAM [Suspect]
     Active Substance: DIAZEPAM
     Indication: Type 2 diabetes mellitus
  15. ZOPICLONE [Suspect]
     Active Substance: ZOPICLONE
     Indication: Product used for unknown indication
     Route: 065
  16. VALPROIC ACID [Suspect]
     Active Substance: VALPROIC ACID
     Indication: Psychotic disorder
     Route: 065
  17. VALPROIC ACID [Suspect]
     Active Substance: VALPROIC ACID
     Route: 065
  18. GLIMEPIRIDE [Concomitant]
     Active Substance: GLIMEPIRIDE
     Indication: Type 2 diabetes mellitus
     Route: 065
  19. INSULIN GLARGINE [Concomitant]
     Active Substance: INSULIN GLARGINE
     Indication: Type 2 diabetes mellitus
     Route: 065
  20. INSULIN GLARGINE [Concomitant]
     Active Substance: INSULIN GLARGINE
     Route: 065
  21. ASPIRIN [Concomitant]
     Active Substance: ASPIRIN
     Indication: Product used for unknown indication
     Route: 065
  22. PANTOPRAZOLE [Concomitant]
     Active Substance: PANTOPRAZOLE
     Indication: Product used for unknown indication
     Route: 065
  23. FUROSEMIDE [Concomitant]
     Active Substance: FUROSEMIDE
     Indication: Type 2 diabetes mellitus
     Route: 065
  24. FUROSEMIDE [Concomitant]
     Active Substance: FUROSEMIDE
     Indication: Epilepsy
  25. ENALAPRIL [Concomitant]
     Active Substance: ENALAPRIL
     Indication: Product used for unknown indication
     Route: 065
  26. LEVOCETIRIZINE [Concomitant]
     Active Substance: LEVOCETIRIZINE
     Indication: Product used for unknown indication
     Route: 065
  27. LACTULOSE [Concomitant]
     Active Substance: LACTULOSE
     Indication: Product used for unknown indication
     Route: 065
  28. INSULIN ASPART [Concomitant]
     Active Substance: INSULIN ASPART
     Indication: Type 2 diabetes mellitus
     Route: 065
  29. LYNESTRENOL [Concomitant]
     Active Substance: LYNESTRENOL
     Route: 065
  30. POLYETHYLENE GLYCOLS [Concomitant]
     Active Substance: POLYETHYLENE GLYCOLS
     Route: 065
  31. THYROXINE [Concomitant]
     Active Substance: LEVOTHYROXINE
     Indication: Type 2 diabetes mellitus
     Route: 065
  32. INSULIN NOS [Concomitant]
     Active Substance: INSULIN NOS
     Indication: Type 2 diabetes mellitus
     Route: 065

REACTIONS (6)
  - Neuroleptic malignant syndrome [Recovered/Resolved]
  - Hypoglycaemia [Recovered/Resolved]
  - Hypothermia [Recovered/Resolved]
  - Seizure [Unknown]
  - Pneumonia [Unknown]
  - Hypotension [Unknown]
